FAERS Safety Report 5560808-6 (Version None)
Quarter: 2007Q4

REPORT INFORMATION
  Report Type: 
  Country: None (occurrence: None)
  Receive Date: 20071215
  Receipt Date: 20071121
  Transmission Date: 20080405
  Serious: No
  Sender: FDA-Public Use
  Company Number: US-ABBOTT-07P-163-0425920-00

PATIENT
  Sex: Male
  Weight: 77.634 kg

DRUGS (4)
  1. HUMIRA [Suspect]
     Indication: CROHN'S DISEASE
     Route: 058
     Dates: start: 20071109
  2. MESALAMINE [Concomitant]
     Indication: CROHN'S DISEASE
     Route: 048
  3. LANTUS [Concomitant]
     Indication: DIABETES MELLITUS
     Route: 058
  4. NOVALOG INSULIN [Concomitant]
     Indication: DIABETES MELLITUS
     Route: 058

REACTIONS (3)
  - BACK PAIN [None]
  - MUSCULOSKELETAL PAIN [None]
  - PAIN IN EXTREMITY [None]
